FAERS Safety Report 9850839 (Version 1)
Quarter: 2013Q4

REPORT INFORMATION
  Report Type: Spontaneous
  Country: US (occurrence: None)
  Receive Date: 20131226
  Receipt Date: 20131226
  Transmission Date: 20140711
  Serious: Yes (Other)
  Sender: FDA-Public Use
  Company Number: PHEH2013US015540

PATIENT
  Sex: Female

DRUGS (1)
  1. ZORTRESS [Suspect]
     Indication: TRANSPLANT

REACTIONS (1)
  - Cytomegalovirus infection [None]
